FAERS Safety Report 6983601-6 (Version None)
Quarter: 2010Q3

REPORT INFORMATION
  Report Type: 
  Country: None (occurrence: None)
  Receive Date: 20100914
  Receipt Date: 20081010
  Transmission Date: 20110219
  Serious: No
  Sender: FDA-Public Use
  Company Number: US-WYE-H06380408

PATIENT
  Age: 30 Year
  Sex: Female
  Weight: 93.07 kg

DRUGS (1)
  1. ADVIL LIQUI-GELS [Suspect]
     Indication: ANALGESIC THERAPY
     Route: 048
     Dates: start: 20080901, end: 20080901

REACTIONS (3)
  - ABDOMINAL PAIN UPPER [None]
  - DRUG SCREEN FALSE POSITIVE [None]
  - OPIATES POSITIVE [None]
